FAERS Safety Report 7699029-X (Version None)
Quarter: 2011Q3

REPORT INFORMATION
  Report Type: 
  Country: None (occurrence: None)
  Receive Date: 20110819
  Receipt Date: 20110812
  Transmission Date: 20111222
  Serious: Yes (Hospitalization)
  Sender: FDA-Public Use
  Company Number: JP-CEPHALON-2011000738

PATIENT
  Sex: Female
  Weight: 52 kg

DRUGS (5)
  1. BENDAMUSTINE HCL [Suspect]
     Indication: MANTLE CELL LYMPHOMA
     Route: 042
     Dates: start: 20110112, end: 20110113
  2. BENDAMUSTINE HCL [Suspect]
     Route: 042
     Dates: start: 20110225
  3. SULFAMETHOXAZOLE AND TRIMETHOPRIM [Concomitant]
  4. VORICONAZOLE [Concomitant]
  5. ALLOPURINOL [Concomitant]

REACTIONS (3)
  - NEUTROPENIA [None]
  - PLATELET COUNT DECREASED [None]
  - PYREXIA [None]
